FAERS Safety Report 25151786 (Version 2)
Quarter: 2025Q2

REPORT INFORMATION
  Report Type: Spontaneous
  Country: IE (occurrence: IE)
  Receive Date: 20250402
  Receipt Date: 20250416
  Transmission Date: 20250716
  Serious: Yes (Other)
  Sender: MYLAN
  Company Number: IE-002147023-NVSC2025IE043240

PATIENT
  Sex: Male

DRUGS (2)
  1. IMATINIB [Suspect]
     Active Substance: IMATINIB
     Indication: Product used for unknown indication
  2. IMATINIB [Suspect]
     Active Substance: IMATINIB

REACTIONS (3)
  - Failure to thrive [Unknown]
  - Abdominal discomfort [Unknown]
  - Therapeutic response decreased [Unknown]
